FAERS Safety Report 8222624-6 (Version None)
Quarter: 2012Q1

REPORT INFORMATION
  Report Type: 
  Country: None (occurrence: None)
  Receive Date: 20120320
  Receipt Date: 20120305
  Transmission Date: 20120608
  Serious: No
  Sender: FDA-Public Use
  Company Number: US-ENDO PHARMACEUTICALS INC.-OPER20120295

PATIENT
  Sex: Female
  Weight: 91.708 kg

DRUGS (6)
  1. OXYCONTIN [Concomitant]
     Indication: CANCER PAIN
     Dosage: 80 MG
     Route: 048
  2. OPANA ER [Suspect]
     Indication: CANCER PAIN
     Route: 048
     Dates: start: 20111101, end: 20111201
  3. OPANA ER [Suspect]
     Indication: SCOLIOSIS
  4. OPANA ER [Suspect]
     Indication: PAIN
     Route: 048
     Dates: start: 20111201, end: 20120201
  5. OXYCONTIN [Concomitant]
     Indication: SCOLIOSIS
  6. OXYCONTIN [Concomitant]
     Indication: PAIN

REACTIONS (5)
  - NAUSEA [None]
  - MALAISE [None]
  - DRUG INEFFECTIVE [None]
  - NERVOUSNESS [None]
  - DIARRHOEA [None]
